FAERS Safety Report 6516850-1 (Version None)
Quarter: 2009Q4

REPORT INFORMATION
  Report Type: 
  Country: None (occurrence: None)
  Receive Date: 20091223
  Receipt Date: 20091218
  Transmission Date: 20100525
  Serious: Yes (Other)
  Sender: FDA-Public Use
  Company Number: PHHY2009DE50564

PATIENT
  Sex: Female
  Weight: 62 kg

DRUGS (3)
  1. CGS 20267 T30748+ [Suspect]
     Indication: BREAST CANCER
     Dosage: 2.5 MG DAILY
     Route: 048
     Dates: start: 20090101, end: 20090322
  2. FAUSTAN [Concomitant]
  3. TAXOL [Concomitant]

REACTIONS (8)
  - DIZZINESS [None]
  - EYELID OEDEMA [None]
  - GAIT DISTURBANCE [None]
  - GENERAL PHYSICAL HEALTH DETERIORATION [None]
  - MUCOUS MEMBRANE DISORDER [None]
  - NAUSEA [None]
  - POLYNEUROPATHY [None]
  - TREMOR [None]
